FAERS Safety Report 8392861-9 (Version None)
Quarter: 2012Q2

REPORT INFORMATION
  Report Type: 
  Country: None (occurrence: None)
  Receive Date: 20120529
  Receipt Date: 20110624
  Transmission Date: 20120825
  Serious: No
  Sender: FDA-Public Use
  Company Number: US-MYLANLABS-2011S1008583

PATIENT
  Age: 61 Year
  Sex: Female
  Weight: 65.77 kg

DRUGS (5)
  1. PREVACID [Concomitant]
     Indication: GASTROOESOPHAGEAL REFLUX DISEASE
     Route: 048
  2. ULTRAM [Concomitant]
     Indication: BACK PAIN
  3. ZOLPIDEM TARTRATE [Suspect]
     Indication: INSOMNIA
     Route: 048
     Dates: start: 20110101, end: 20110301
  4. ROPINIROLE [Concomitant]
     Indication: RESTLESS LEGS SYNDROME
     Route: 048
  5. DIGOXIN [Concomitant]
     Indication: HEART RATE IRREGULAR

REACTIONS (2)
  - INSOMNIA [None]
  - DRUG INEFFECTIVE [None]
